FAERS Safety Report 4305319-0 (Version None)
Quarter: 2004Q1

REPORT INFORMATION
  Report Type: 
  Country: None (occurrence: None)
  Receive Date: 20040226
  Receipt Date: 20030507
  Transmission Date: 20041129
  Serious: No
  Sender: FDA-Public Use
  Company Number: US-BRISTOL-MYERS SQUIBB COMPANY-12272001

PATIENT
  Age: 55 Year
  Sex: Female
  Weight: 56 kg

DRUGS (5)
  1. TAXOL [Suspect]
     Indication: CARCINOMA
     Route: 042
     Dates: start: 20030429, end: 20030429
  2. PEPCID [Concomitant]
     Indication: PREMEDICATION
     Route: 042
  3. ZOFRAN [Concomitant]
     Indication: PREMEDICATION
     Route: 042
  4. BENADRYL [Concomitant]
     Indication: PREMEDICATION
     Route: 042
  5. SOLU-CORTEF [Concomitant]
     Indication: PREMEDICATION
     Route: 042

REACTIONS (1)
  - HOARSENESS [None]
